FAERS Safety Report 8102578 (Version 8)
Quarter: 2013Q4

REPORT INFORMATION
  Report Type: Spontaneous
  Country: US (occurrence: US)
  Receive Date: 20110823
  Receipt Date: 20131203
  Transmission Date: 20140711
  Serious: Yes (Hospitalization)
  Sender: FDA-Public Use
  Company Number: US-GLAXOSMITHKLINE-A0915661A

PATIENT
  Age: 43 Year
  Sex: Female
  Weight: 101.8 kg

DRUGS (1)
  1. AVANDIA [Suspect]
     Indication: DIABETES MELLITUS
     Dosage: 8MG PER DAY
     Route: 048
     Dates: start: 200609, end: 201007

REACTIONS (3)
  - Cerebrovascular accident [Unknown]
  - Hypertensive crisis [Unknown]
  - Cardiovascular disorder [Unknown]
